FAERS Safety Report 16522618 (Version 1)
Quarter: 2019Q3

REPORT INFORMATION
  Report Type: Report from Study
  Country: US (occurrence: US)
  Receive Date: 20190703
  Receipt Date: 20190703
  Transmission Date: 20191004
  Serious: Yes (Death, Other)
  Sender: FDA-Public Use
  Company Number: US-BION-008117

PATIENT
  Age: 44 Year
  Sex: Male

DRUGS (4)
  1. CYCLOBENZAPRINE. [Suspect]
     Active Substance: CYCLOBENZAPRINE
     Indication: PRODUCT USED FOR UNKNOWN INDICATION
  2. LOPERAMIDE HYDROCHLORIDE. [Suspect]
     Active Substance: LOPERAMIDE HYDROCHLORIDE
  3. CHLORPHENAMINE MALEATE/DEXTROMETHORPHAN HYDROBROMIDE/GUAIFENESIN/METHYLEPHEDRINE HYDROCHLORIDE- [Suspect]
     Active Substance: CHLORPHENIRAMINE MALEATE\DEXTROMETHORPHAN HBR/GUAIFENESIN/METHYLEPHEDRINE HCL
     Indication: PRODUCT USED FOR UNKNOWN INDICATION
  4. DEXTROMETHORPHAN\LEVOMETHORPHAN [Suspect]
     Active Substance: DEXTROMETHORPHAN\LEVOMETHORPHAN

REACTIONS (3)
  - Toxicity to various agents [Fatal]
  - Overdose [Fatal]
  - Drug level increased [Fatal]

NARRATIVE: CASE EVENT DATE: 2018
